FAERS Safety Report 7595664-8 (Version None)
Quarter: 2011Q3

REPORT INFORMATION
  Report Type: 
  Country: None (occurrence: None)
  Receive Date: 20110707
  Receipt Date: 20110628
  Transmission Date: 20111222
  Serious: Yes (Hospitalization, Other)
  Sender: FDA-Public Use
  Company Number: US-MERCK-1102USA02269

PATIENT
  Age: 53 Year
  Sex: Female

DRUGS (18)
  1. FOSAMAX [Suspect]
     Indication: OSTEOPOROSIS
     Route: 048
     Dates: start: 19980101, end: 20100101
  2. ACIPHEX [Concomitant]
     Route: 065
     Dates: start: 20010101, end: 20030101
  3. TAMOXIFEN CITRATE [Concomitant]
     Indication: BREAST CANCER
     Route: 065
     Dates: start: 20020101
  4. SOLODYN [Concomitant]
     Route: 065
     Dates: start: 20090101
  5. VICODIN [Concomitant]
     Route: 065
     Dates: start: 20070101
  6. ASCORBIC ACID [Concomitant]
     Route: 065
  7. FEMARA [Concomitant]
     Route: 065
     Dates: start: 20070101
  8. AMOXICILLIN [Concomitant]
     Route: 065
     Dates: start: 20040101
  9. AZITHROMYCIN [Concomitant]
     Route: 065
     Dates: start: 20090101
  10. CALCIUM (UNSPECIFIED) AND VITAMIN D (UNSPECIFIED) [Concomitant]
     Route: 065
  11. VITAMIN D (UNSPECIFIED) [Concomitant]
     Route: 065
  12. OMEPRAZOLE [Concomitant]
     Route: 065
     Dates: start: 20040101
  13. RECLAST [Concomitant]
     Indication: OSTEOPOROSIS
     Dosage: 1
     Route: 041
  14. ALLEGRA [Concomitant]
     Indication: HYPERSENSITIVITY
     Route: 065
     Dates: start: 20090101
  15. FOSAMAX [Suspect]
     Indication: OSTEOPENIA
     Route: 048
     Dates: start: 19980101, end: 20100101
  16. CAFERGOT [Concomitant]
     Route: 065
     Dates: start: 20070101
  17. VITAMINS (UNSPECIFIED) [Concomitant]
     Route: 065
  18. CLINDAMYCIN [Concomitant]
     Route: 065
     Dates: start: 20090101

REACTIONS (15)
  - NEPHROLITHIASIS [None]
  - ARTHRITIS [None]
  - OVARIAN CYST [None]
  - ORAL DISORDER [None]
  - FEMUR FRACTURE [None]
  - CHEST PAIN [None]
  - BLOOD CHOLESTEROL [None]
  - GINGIVAL DISORDER [None]
  - DEPRESSION [None]
  - HEADACHE [None]
  - TIBIA FRACTURE [None]
  - GALLBLADDER DISORDER [None]
  - DENTAL CARIES [None]
  - ENDODONTIC PROCEDURE [None]
  - BREAST DISORDER [None]
